FAERS Safety Report 14651695 (Version 4)
Quarter: 2018Q2

REPORT INFORMATION
  Report Type: Spontaneous
  Country: NL (occurrence: NL)
  Receive Date: 20180317
  Receipt Date: 20180412
  Transmission Date: 20180711
  Serious: Yes (Hospitalization, Disabling, Other)
  Sender: FDA-Public Use
  Company Number: NL-AUROBINDO-AUR-APL-2018-010533

PATIENT
  Age: 40 Year
  Sex: Male

DRUGS (4)
  1. METHOTREXATE. [Suspect]
     Active Substance: METHOTREXATE
     Indication: RHEUMATOID ARTHRITIS
     Dosage: ()
     Route: 065
  2. METHOTREXATE. [Suspect]
     Active Substance: METHOTREXATE
     Dosage: ()
  3. METHOTREXATE. [Suspect]
     Active Substance: METHOTREXATE
     Dosage: ()
  4. PREDNISONE. [Suspect]
     Active Substance: PREDNISONE
     Indication: RHEUMATOID ARTHRITIS
     Dosage: ()
     Route: 065

REACTIONS (4)
  - Candida infection [Recovered/Resolved]
  - Periodontitis [Recovered/Resolved]
  - Mucocutaneous leishmaniasis [Recovered/Resolved]
  - Stomatitis [Recovered/Resolved]
